FAERS Safety Report 7384215-9 (Version None)
Quarter: 2011Q1

REPORT INFORMATION
  Report Type: 
  Country: None (occurrence: None)
  Receive Date: 20110330
  Receipt Date: 20110324
  Transmission Date: 20110831
  Serious: Yes (Hospitalization, Other)
  Sender: FDA-Public Use
  Company Number: DE-ABBOTT-11P-062-0714117-00

PATIENT
  Sex: Male
  Weight: 60 kg

DRUGS (3)
  1. HYDROCORTISONE [Concomitant]
     Indication: CROHN'S DISEASE
     Dosage: DAILY DOSE: 40 MG
     Dates: start: 20100101
  2. AZATHIOPRIN [Concomitant]
     Indication: CROHN'S DISEASE
     Dosage: DAILY DOSE: 125 MG
     Dates: start: 20100101
  3. HUMIRA [Suspect]
     Indication: CROHN'S DISEASE
     Route: 058
     Dates: start: 20100318

REACTIONS (2)
  - JEJUNAL STENOSIS [None]
  - SUBILEUS [None]
